APPROVED DRUG PRODUCT: LEVOLEUCOVORIN CALCIUM
Active Ingredient: LEVOLEUCOVORIN CALCIUM
Strength: EQ 175MG BASE/17.5ML (EQ 10MG BASE/ML)
Dosage Form/Route: SOLUTION;INTRAVENOUS
Application: A217314 | Product #001 | TE Code: AP
Applicant: HAINAN POLY PHARMACEUTICAL CO LTD
Approved: May 22, 2023 | RLD: No | RS: No | Type: RX